FAERS Safety Report 6024595-X (Version None)
Quarter: 2008Q4

REPORT INFORMATION
  Report Type: 
  Country: None (occurrence: None)
  Receive Date: 20081231
  Receipt Date: 20081119
  Transmission Date: 20090506
  Serious: Yes (Other)
  Sender: FDA-Public Use
  Company Number: US-BRISTOL-MYERS SQUIBB COMPANY-14412910

PATIENT
  Age: 48 Year
  Sex: Female
  Weight: 73 kg

DRUGS (8)
  1. ORENCIA [Suspect]
     Indication: RHEUMATOID ARTHRITIS
     Route: 042
     Dates: start: 20081119
  2. FOLIC ACID [Concomitant]
  3. TYLENOL W/ CODEINE NO. 4 [Concomitant]
  4. BONIVA [Concomitant]
  5. EXCEDRIN (MIGRAINE) [Concomitant]
  6. CELEBREX [Concomitant]
  7. PLAQUENIL [Concomitant]
  8. NAPROXEN [Concomitant]

REACTIONS (4)
  - OEDEMA PERIPHERAL [None]
  - PAIN [None]
  - PAIN IN EXTREMITY [None]
  - PRURITUS [None]
